FAERS Safety Report 9171320 (Version 1)
Quarter: 2013Q1

REPORT INFORMATION
  Report Type: Spontaneous
  Country: FR (occurrence: FR)
  Receive Date: 20130319
  Receipt Date: 20130319
  Transmission Date: 20140127
  Serious: Yes (Life-Threatening, Hospitalization)
  Sender: FDA-Public Use
  Company Number: FR-PFIZER INC-2013085522

PATIENT
  Age: 79 Year
  Sex: Female

DRUGS (4)
  1. AROMASINE [Suspect]
     Dosage: 25 MG, 1X/DAY
     Route: 048
     Dates: start: 201105
  2. ACTONEL [Concomitant]
  3. SIMVASTATIN [Concomitant]
  4. OROCAL [Concomitant]

REACTIONS (1)
  - Pulmonary embolism [Not Recovered/Not Resolved]
